FAERS Safety Report 9090618 (Version 1)
Quarter: 2013Q1

REPORT INFORMATION
  Report Type: Report from Study
  Country: US (occurrence: US)
  Receive Date: 20130131
  Receipt Date: 20130131
  Transmission Date: 20140127
  Serious: Yes (Hospitalization)
  Sender: FDA-Public Use
  Company Number: US-ABBOTT-12P-163-1015322-00

PATIENT
  Age: 50 Year
  Sex: Female

DRUGS (22)
  1. HUMIRA [Suspect]
     Indication: CROHN^S DISEASE
     Dates: start: 20120914
  2. HUMIRA [Suspect]
     Dates: start: 20121116
  3. LYRICA [Concomitant]
     Indication: PAIN
     Dosage: AT BEDTIME
     Route: 048
  4. LYRICA [Concomitant]
     Indication: HEADACHE
  5. AMITRIPTYLINE [Concomitant]
     Indication: HEADACHE
     Dosage: AT BEDTIME
     Route: 048
  6. ASA [Concomitant]
     Indication: PROPHYLAXIS
     Route: 048
  7. CALCIUM [Concomitant]
     Indication: OSTEOPOROSIS
     Route: 048
  8. POTASSIUM [Concomitant]
     Indication: MUSCLE SPASMS
     Route: 048
  9. VITAMIN B12 [Concomitant]
     Indication: ASTHENIA
     Route: 048
  10. VITAMIN D [Concomitant]
     Indication: VITAMIN D DECREASED
     Route: 048
  11. TRAMADOL [Concomitant]
     Indication: HEADACHE
     Dosage: 1-2 PILLS AS NEEDED EVERY 6 HOURS
  12. TRAMADOL [Concomitant]
     Indication: PAIN
  13. CLONIDINE [Concomitant]
     Indication: HYPERTENSION
     Route: 048
  14. ROPINIROLE [Concomitant]
     Indication: MUSCLE SPASMS
     Dosage: AT BEDTIME
     Route: 048
  15. ESTRADIOL [Concomitant]
     Indication: HORMONE LEVEL ABNORMAL
     Route: 048
  16. RANITIDINE HCL [Concomitant]
     Indication: GASTROOESOPHAGEAL REFLUX DISEASE
     Route: 048
  17. OMEPRAZOLE [Concomitant]
     Indication: GASTROOESOPHAGEAL REFLUX DISEASE
     Route: 048
  18. DICYCLOMINE HCL [Concomitant]
     Indication: GASTROINTESTINAL PAIN
     Dosage: 200 MG IN AM, 10 MG IN PM
     Route: 048
  19. DICYCLOMINE HCL [Concomitant]
     Indication: PROPHYLAXIS
  20. CELEXA [Concomitant]
     Indication: DEPRESSION
     Dosage: AT BEDTIME
     Route: 048
  21. CARVEDILOL [Concomitant]
     Indication: HYPERTENSION
     Route: 048
  22. METHOCARBAMOL [Concomitant]
     Indication: MUSCLE RELAXANT THERAPY
     Route: 048

REACTIONS (3)
  - Intestinal resection [Not Recovered/Not Resolved]
  - Diarrhoea [Unknown]
  - Weight decreased [Unknown]
